FAERS Safety Report 4392190-4 (Version None)
Quarter: 2004Q3

REPORT INFORMATION
  Report Type: 
  Country: None (occurrence: None)
  Receive Date: 20040702
  Receipt Date: 20040618
  Transmission Date: 20050211
  Serious: Yes (Hospitalization)
  Sender: FDA-Public Use
  Company Number: 194865

PATIENT
  Age: 51 Year
  Sex: Male

DRUGS (3)
  1. AVONEX [Suspect]
     Indication: MULTIPLE SCLEROSIS
     Dosage: 30 MCG QW IM
     Route: 030
     Dates: start: 20020722
  2. PERCOCET [Concomitant]
  3. ZANAFLEX [Concomitant]

REACTIONS (5)
  - ABASIA [None]
  - FALL [None]
  - FROSTBITE [None]
  - MUSCLE SPASMS [None]
  - TOE AMPUTATION [None]
